FAERS Safety Report 4726896-1 (Version None)
Quarter: 2005Q3

REPORT INFORMATION
  Report Type: 
  Country: None (occurrence: None)
  Receive Date: 20050726
  Receipt Date: 20050714
  Transmission Date: 20060218
  Serious: Yes (Death, Hospitalization)
  Sender: FDA-Public Use
  Company Number: 2005-BP-11790EX

PATIENT
  Age: 77 Year
  Sex: Male

DRUGS (7)
  1. PREDNISONE TAB [Suspect]
     Indication: PROSTATE CANCER METASTATIC
     Dosage: 10 MG  DAILY, PO
     Route: 048
     Dates: start: 20050504, end: 20050525
  2. MITOXANTRONE [Suspect]
     Indication: PROSTATE CANCER METASTATIC
     Dosage: 12 MG/M2 Q3 WEEKS , IV
     Route: 042
     Dates: start: 20050504, end: 20050525
  3. ACETAMINOPHEN [Concomitant]
  4. DICLOFENAC W/MISOPROSTOL (DICLOFENAC W/MISOPROSTOL) [Concomitant]
  5. FUROSEMIDE (FUROSEMIDE) [Concomitant]
  6. BUSERELIN ACETATE (BUSERELIN ACETATE) [Concomitant]
  7. ZOLEDRONATE (ZOLEDRONIC ACID) [Concomitant]

REACTIONS (2)
  - ASTHENIA [None]
  - DEHYDRATION [None]
